FAERS Safety Report 9187847 (Version 1)
Quarter: 2013Q1

REPORT INFORMATION
  Report Type: Spontaneous
  Country: US (occurrence: US)
  Receive Date: 20130325
  Receipt Date: 20130325
  Transmission Date: 20140127
  Serious: No
  Sender: FDA-Public Use
  Company Number: US-MYLANLABS-2012S1012461

PATIENT
  Age: 51 Year
  Sex: Male
  Weight: 53.52 kg

DRUGS (6)
  1. OXYCODONE [Suspect]
     Indication: PAIN
     Dosage: Q8H PRN
     Route: 048
     Dates: start: 201001
  2. FENTANYL TRANSDERMAL SYSTEM [Suspect]
     Indication: PELVIC PAIN
     Dosage: Q48H
     Route: 062
     Dates: start: 201006, end: 20120205
  3. FENTANYL TRANSDERMAL SYSTEM [Suspect]
     Indication: PAIN
     Dosage: Q48H
     Route: 062
     Dates: start: 201006, end: 20120205
  4. FENTANYL TRANSDERMAL SYSTEM [Suspect]
     Indication: PELVIC PAIN
     Dosage: CHANGED Q48H
     Route: 062
     Dates: start: 20120206
  5. FENTANYL TRANSDERMAL SYSTEM [Suspect]
     Indication: PAIN
     Dosage: CHANGED Q48H
     Route: 062
     Dates: start: 20120206
  6. IRON [Concomitant]
     Indication: IRON DEFICIENCY

REACTIONS (4)
  - Weight decreased [Not Recovered/Not Resolved]
  - Dental caries [Not Recovered/Not Resolved]
  - Gingival recession [Not Recovered/Not Resolved]
  - Aptyalism [Not Recovered/Not Resolved]
